FAERS Safety Report 4791754-3 (Version None)
Quarter: 2005Q4

REPORT INFORMATION
  Report Type: 
  Country: None (occurrence: None)
  Receive Date: 20051007
  Receipt Date: 20050915
  Transmission Date: 20060501
  Serious: Yes (Hospitalization, Other)
  Sender: FDA-Public Use
  Company Number: PHFR2005GB03077

PATIENT
  Age: 4 Month
  Sex: Female
  Weight: 3 kg

DRUGS (4)
  1. TEGRETOL [Suspect]
     Route: 064
  2. FOLIC ACID [Suspect]
     Route: 064
  3. INSULIN GLARGINE [Suspect]
     Route: 064
  4. INSULIN HUMAN [Suspect]
     Route: 064

REACTIONS (7)
  - APGAR SCORE LOW [None]
  - CONTUSION [None]
  - DRUG EXPOSURE DURING PREGNANCY [None]
  - HYPOGLYCAEMIA [None]
  - HYPOGLYCAEMIA NEONATAL [None]
  - NEONATAL RESPIRATORY DISTRESS SYNDROME [None]
  - RESPIRATORY DISTRESS [None]
